FAERS Safety Report 16801257 (Version 1)
Quarter: 2019Q3

REPORT INFORMATION
  Report Type: Spontaneous
  Country: CH (occurrence: CH)
  Receive Date: 20190912
  Receipt Date: 20190912
  Transmission Date: 20191005
  Serious: Yes (Death)
  Sender: FDA-Public Use
  Company Number: CH-BAYER-2019-164081

PATIENT
  Sex: Male

DRUGS (2)
  1. NEXAVAR [Suspect]
     Active Substance: SORAFENIB
     Dosage: FIRST SHIPMENT
     Route: 048
     Dates: start: 20180323
  2. NEXAVAR [Suspect]
     Active Substance: SORAFENIB
     Dosage: LAST SHIPMENT
     Route: 048
     Dates: start: 20190107

REACTIONS (1)
  - Death [Fatal]
